FAERS Safety Report 8107535-9 (Version None)
Quarter: 2012Q1

REPORT INFORMATION
  Report Type: 
  Country: None (occurrence: None)
  Receive Date: 20120202
  Receipt Date: 20111021
  Transmission Date: 20120608
  Serious: Yes (Hospitalization)
  Sender: FDA-Public Use
  Company Number: US-ROCHE-1019015

PATIENT
  Age: 48 Year
  Sex: Male
  Weight: 112.2 kg

DRUGS (17)
  1. VEMURAFENIB [Suspect]
     Indication: MALIGNANT MELANOMA
     Dosage: MOST RECENT DOSE 26 SEP 2011
     Route: 048
     Dates: start: 20110829
  2. ATIVAN [Concomitant]
     Route: 048
  3. OMEPRAZOLE [Concomitant]
     Dosage: 20 MG 2 TABLETS
     Route: 048
  4. TRAZODONE HCL [Concomitant]
     Dosage: QHS
     Route: 048
  5. DECADRON [Concomitant]
     Dosage: AS NECESSARY
  6. LISINOPRIL [Concomitant]
  7. ONDANSETRON HCL [Concomitant]
     Indication: NAUSEA
     Dosage: AS NECCESSARY
     Route: 048
  8. PERCOCET [Concomitant]
     Dosage: 5MG/325MG
     Route: 048
  9. VIMPAT [Concomitant]
     Route: 048
  10. VEMURAFENIB [Suspect]
  11. TRIAMCINOLONE [Concomitant]
     Indication: RASH
     Route: 061
  12. COMPAZINE [Concomitant]
     Dosage: AS NECESSARY
     Route: 048
  13. ZYPREXA [Concomitant]
     Dosage: 1/2 TABLET TO BE INCREASE TO 1 IF NEEDED.
     Route: 048
  14. DECADRON [Concomitant]
     Dosage: AS DIRECTED
     Route: 048
  15. METHYLPHENIDATE HCL [Concomitant]
     Route: 048
  16. VITAMIN D [Concomitant]
     Dosage: 2000 UNITS
     Route: 048
  17. BACTRIM [Concomitant]
     Dosage: ON MONDAY, WEDNESDAY AND TUESDAYX 30 DAYS
     Route: 048

REACTIONS (1)
  - DIVERTICULAR PERFORATION [None]
